FAERS Safety Report 17646396 (Version 4)
Quarter: 2020Q4

REPORT INFORMATION
  Report Type: Report from Study
  Country: PL (occurrence: PL)
  Receive Date: 20200408
  Receipt Date: 20201027
  Transmission Date: 20210113
  Serious: Yes (Hospitalization)
  Sender: FDA-Public Use
  Company Number: PL-JNJFOC-20200113030

PATIENT
  Age: 51 Year
  Sex: Female
  Weight: 69 kg

DRUGS (15)
  1. BUSCOPAN [Concomitant]
     Active Substance: BUTYLSCOPOLAMINE BROMIDE
     Indication: CROHN^S DISEASE
     Route: 065
     Dates: start: 20200103, end: 20200103
  2. KALDYUM [Concomitant]
     Active Substance: POTASSIUM CHLORIDE
     Route: 065
     Dates: start: 20190321
  3. SPADE FORTE [Concomitant]
     Indication: CROHN^S DISEASE
     Route: 065
     Dates: start: 20191130
  4. IBUPROFEN. [Concomitant]
     Active Substance: IBUPROFEN
     Indication: CROHN^S DISEASE
     Route: 065
     Dates: start: 20191225
  5. ADALIMUMAB [Suspect]
     Active Substance: ADALIMUMAB
     Dosage: 2 SC DOSES OF ADALIMUMAB/PLACEBO
     Route: 058
     Dates: start: 20191209
  6. ASAMAX [Concomitant]
     Active Substance: MESALAMINE
     Dates: start: 20200103, end: 20200107
  7. ADALIMUMAB [Suspect]
     Active Substance: ADALIMUMAB
     Indication: CROHN^S DISEASE
     Route: 042
     Dates: start: 20191127
  8. BIOPRAZOL [Concomitant]
     Route: 065
     Dates: start: 20200116
  9. CIPRONEX                           /00697201/ [Concomitant]
     Active Substance: CIPROFLOXACIN
     Indication: CROHN^S DISEASE
     Dates: start: 20200704
  10. ADALIMUMAB [Suspect]
     Active Substance: ADALIMUMAB
     Dosage: 4 SC DOSES OF ADALIMUMAB/PLACEBO
     Route: 058
     Dates: start: 20191127
  11. ADALIMUMAB [Suspect]
     Active Substance: ADALIMUMAB
     Dosage: 1SC DOSES OF ADALIMUMAB/PLACEBO??THE LAST DOSE RECEIVED WAS 40 MG
     Route: 058
     Dates: start: 20190110
  12. ASAMAX [Concomitant]
     Active Substance: MESALAMINE
     Indication: CROHN^S DISEASE
     Route: 065
     Dates: start: 20190321, end: 20191028
  13. ENTOCORT [Concomitant]
     Active Substance: BUDESONIDE
     Indication: CROHN^S DISEASE
     Route: 065
     Dates: start: 20190321
  14. KALDYUM [Concomitant]
     Active Substance: POTASSIUM CHLORIDE
     Route: 065
     Dates: start: 20200108, end: 20200115
  15. ADALIMUMAB [Suspect]
     Active Substance: ADALIMUMAB
     Dosage: 1SC DOSES OF ADALIMUMAB/PLACEBO
     Route: 058
     Dates: start: 20191209

REACTIONS (2)
  - Large intestinal obstruction [Recovered/Resolved]
  - Intussusception [Recovered/Resolved]

NARRATIVE: CASE EVENT DATE: 20200103
